FAERS Safety Report 5593069-2 (Version None)
Quarter: 2008Q1

REPORT INFORMATION
  Report Type: 
  Country: None (occurrence: None)
  Receive Date: 20080116
  Receipt Date: 20080107
  Transmission Date: 20080703
  Serious: Yes (Other)
  Sender: FDA-Public Use
  Company Number: IT-WYE-H01782007

PATIENT
  Age: 36 Month
  Sex: Male

DRUGS (1)
  1. IBUPROFEN [Suspect]
     Indication: EAR PAIN
     Dosage: ^SEVERAL PEDIATRIC DOSES THAT DAY^
     Route: 048

REACTIONS (8)
  - ATAXIA [None]
  - CONVULSION [None]
  - DIPLOPIA [None]
  - DRUG SCREEN FALSE POSITIVE [None]
  - HYPOTONIA [None]
  - OVERDOSE [None]
  - POISONING [None]
  - VOMITING [None]
